FAERS Safety Report 8117116-9 (Version None)
Quarter: 2011Q4

REPORT INFORMATION
  Report Type: 
  Country: None (occurrence: None)
  Receive Date: 20111227
  Receipt Date: 20110329
  Transmission Date: 20120403
  Serious: Yes (Other)
  Sender: FDA-Public Use
  Company Number: PHHY2011US02061

PATIENT
  Sex: Female

DRUGS (15)
  1. HERCEPTIN [Suspect]
  2. PROBIOTICS (NO INGREDIENTS/SUBSTANCES) [Concomitant]
  3. ATENOLOL [Concomitant]
  4. CALCIUM CARBONATE [Concomitant]
  5. ZOLOFT [Concomitant]
  6. COENZYME Q10 [Concomitant]
  7. MAGNESIUM (MAGNESIUM) [Concomitant]
  8. FEMARA [Suspect]
     Indication: INFLAMMATORY CARCINOMA OF THE BREAST
     Dosage: 2.5 MG, QD, ORAL
     Route: 048
     Dates: start: 20100903, end: 20101201
  9. ZANTAC [Concomitant]
  10. MAXZIDE [Concomitant]
  11. VITAMIN D [Concomitant]
  12. ZOCOR [Concomitant]
  13. ASPIRIN [Concomitant]
  14. CENTRUM SILVER (ASCORBIC ACID, CALCIUM, MINERALS NOS, RETINOL, TOCOPHE [Concomitant]
  15. FOLIC ACID [Concomitant]

REACTIONS (6)
  - ARTHRITIS [None]
  - NIGHT SWEATS [None]
  - MYALGIA [None]
  - HOT FLUSH [None]
  - ARTHRALGIA [None]
  - BONE PAIN [None]
